FAERS Safety Report 8184553-6 (Version None)
Quarter: 2012Q1

REPORT INFORMATION
  Report Type: 
  Country: None (occurrence: None)
  Receive Date: 20120305
  Receipt Date: 20120223
  Transmission Date: 20120608
  Serious: Yes (Other)
  Sender: FDA-Public Use
  Company Number: CH-MERCK-1202USA03715

PATIENT
  Age: 34 Year
  Sex: Female

DRUGS (5)
  1. NIFEDIPINE [Concomitant]
     Route: 065
  2. COZAAR [Suspect]
     Indication: HYPERTENSION
     Route: 048
  3. COZAAR [Suspect]
     Route: 048
  4. METOPROLOL [Concomitant]
     Route: 065
  5. HYDROXYCHLOROQUINE SULFATE [Concomitant]
     Route: 065

REACTIONS (3)
  - MATERNAL EXPOSURE DURING PREGNANCY [None]
  - OLIGOHYDRAMNIOS [None]
  - COMPLICATION OF DELIVERY [None]
